FAERS Safety Report 25150576 (Version 2)
Quarter: 2025Q3

REPORT INFORMATION
  Report Type: Spontaneous
  Country: AU (occurrence: AU)
  Receive Date: 20250402
  Receipt Date: 20250802
  Transmission Date: 20251021
  Serious: Yes (Hospitalization, Other)
  Sender: ALEXION PHARMACEUTICALS
  Company Number: AU-ASTRAZENECA-202501OCE000880AU

PATIENT
  Age: 59 Year
  Sex: Female

DRUGS (18)
  1. FULVESTRANT [Suspect]
     Active Substance: FULVESTRANT
     Indication: Breast cancer
     Dates: start: 20240105, end: 20240105
  2. FULVESTRANT [Suspect]
     Active Substance: FULVESTRANT
     Dates: start: 20240503, end: 20240503
  3. FULVESTRANT [Suspect]
     Active Substance: FULVESTRANT
     Dates: start: 20241104, end: 20241104
  4. FULVESTRANT [Suspect]
     Active Substance: FULVESTRANT
     Dates: start: 20240918, end: 20240918
  5. FULVESTRANT [Suspect]
     Active Substance: FULVESTRANT
     Dates: start: 20240319, end: 20240319
  6. FULVESTRANT [Suspect]
     Active Substance: FULVESTRANT
     Dates: start: 20240821, end: 20240821
  7. FULVESTRANT [Suspect]
     Active Substance: FULVESTRANT
     Dates: start: 20241022, end: 20241022
  8. FULVESTRANT [Suspect]
     Active Substance: FULVESTRANT
     Dates: start: 20240724, end: 20240724
  9. FULVESTRANT [Suspect]
     Active Substance: FULVESTRANT
     Dates: start: 20240626, end: 20240626
  10. FULVESTRANT [Suspect]
     Active Substance: FULVESTRANT
     Dates: start: 20240529, end: 20240529
  11. OXYCODONE HYDROCHLORIDE [Concomitant]
     Active Substance: OXYCODONE HYDROCHLORIDE
     Indication: Lymphoedema
  12. ATORVASTATIN [Concomitant]
     Active Substance: ATORVASTATIN
     Indication: Hypercholesterolaemia
  13. DOCUSATE SODIUM [Concomitant]
     Active Substance: DOCUSATE SODIUM
     Indication: Constipation
  14. FUROSEMIDE [Concomitant]
     Active Substance: FUROSEMIDE
     Indication: Lymphoedema
     Dates: start: 20240918, end: 20241021
  15. METOCLOPRAMIDE [Concomitant]
     Active Substance: METOCLOPRAMIDE
     Indication: Nausea
  16. ACECLOFENAC\ACETAMINOPHEN [Concomitant]
     Active Substance: ACECLOFENAC\ACETAMINOPHEN
     Indication: Headache
  17. ACECLOFENAC\ACETAMINOPHEN [Concomitant]
     Active Substance: ACECLOFENAC\ACETAMINOPHEN
     Indication: Breast pain
  18. POTASSIUM CHLORIDE [Concomitant]
     Active Substance: POTASSIUM CHLORIDE
     Indication: Prophylaxis
     Dates: start: 20240808, end: 20241011

REACTIONS (1)
  - Hypokalaemia [Recovered/Resolved]

NARRATIVE: CASE EVENT DATE: 20241016
